FAERS Safety Report 25456650 (Version 1)
Quarter: 2025Q2

REPORT INFORMATION
  Report Type: Spontaneous
  Country: FR (occurrence: FR)
  Receive Date: 20250619
  Receipt Date: 20250619
  Transmission Date: 20250717
  Serious: Yes (Other)
  Sender: FRESENIUS KABI
  Company Number: None

PATIENT
  Age: 74 Year
  Sex: Male
  Weight: 58.5 kg

DRUGS (14)
  1. CLINDAMYCIN PHOSPHATE [Suspect]
     Active Substance: CLINDAMYCIN PHOSPHATE
     Indication: Bacteraemia
     Dosage: 600 MG EVERY 8 HOURS
     Route: 042
     Dates: start: 20250526, end: 20250604
  2. VORICONAZOLE [Suspect]
     Active Substance: VORICONAZOLE
     Indication: Bronchopulmonary aspergillosis
     Dosage: 400 MG EVERY 12 HOURS
     Route: 042
     Dates: start: 20250530, end: 20250530
  3. VORICONAZOLE [Suspect]
     Active Substance: VORICONAZOLE
     Dosage: 400 MG EVERY 12 HOURS
     Route: 042
     Dates: start: 20250602, end: 20250602
  4. VORICONAZOLE [Suspect]
     Active Substance: VORICONAZOLE
     Dosage: 200 MG EVERY 12HOURS
     Route: 042
     Dates: start: 20250603, end: 20250604
  5. AUGMENTIN [Suspect]
     Active Substance: AMOXICILLIN\CLAVULANATE POTASSIUM
     Indication: Skin infection
     Route: 048
     Dates: start: 20250520, end: 20250522
  6. CEFTRIAXONE SODIUM [Suspect]
     Active Substance: CEFTRIAXONE SODIUM
     Indication: Bacteraemia
     Route: 042
     Dates: start: 20250530, end: 20250602
  7. BACTRIM [Suspect]
     Active Substance: SULFAMETHOXAZOLE\TRIMETHOPRIM
     Indication: Bacteraemia
     Dosage: 02 AMPOULES EVERY 12 HOURS
     Route: 042
     Dates: start: 20250531, end: 20250602
  8. CASPOFUNGIN ACETATE [Suspect]
     Active Substance: CASPOFUNGIN ACETATE
     Indication: Bronchopulmonary aspergillosis
     Route: 042
     Dates: start: 20250530, end: 20250530
  9. CASPOFUNGIN ACETATE [Suspect]
     Active Substance: CASPOFUNGIN ACETATE
     Route: 042
     Dates: start: 20250531, end: 20250602
  10. VALACICLOVIR ARROW 500 mg, film-coated tablets [Concomitant]
     Indication: Product used for unknown indication
     Dosage: 500 MG MORNING AND EVENING
     Route: 048
     Dates: start: 20250523, end: 20250604
  11. ATOVAQUONE [Concomitant]
     Active Substance: ATOVAQUONE
     Indication: Product used for unknown indication
     Dosage: 750 MG MORNING AND EVENING
     Route: 048
     Dates: start: 20250523, end: 20250604
  12. NEFOPAM HYDROCHLORIDE [Concomitant]
     Active Substance: NEFOPAM HYDROCHLORIDE
     Indication: Analgesic intervention supportive therapy
     Dates: start: 20250522
  13. MORPHINE HYDROCHLORIDE [Concomitant]
     Active Substance: MORPHINE HYDROCHLORIDE
     Indication: Analgesic intervention supportive therapy
     Route: 042
     Dates: start: 20250530, end: 20250604
  14. PARACETAMOL B BRAUN 10 mg/ml, solution for infusion [Concomitant]
     Indication: Analgesic intervention supportive therapy
     Route: 042
     Dates: start: 20250522, end: 20250604

REACTIONS (1)
  - Cholestatic liver injury [Recovering/Resolving]

NARRATIVE: CASE EVENT DATE: 20250602
